FAERS Safety Report 9448044 (Version 3)
Quarter: 2013Q4

REPORT INFORMATION
  Report Type: Spontaneous
  Country: GB (occurrence: GB)
  Receive Date: 20130808
  Receipt Date: 20131007
  Transmission Date: 20140711
  Serious: Yes (Other)
  Sender: FDA-Public Use
  Company Number: GB-AMGEN-GBRSP2013055252

PATIENT
  Age: 48 Year
  Sex: Male

DRUGS (3)
  1. ARANESP [Suspect]
     Indication: RENAL DISORDER
     Dosage: 40 MUG, UNK
     Route: 065
     Dates: start: 201307
  2. ARANESP [Suspect]
     Route: 065
  3. ANTIBIOTICS [Concomitant]
     Dosage: EVERY MORNING

REACTIONS (2)
  - Hypoglycaemia [Unknown]
  - Wrong technique in drug usage process [Unknown]
